FAERS Safety Report 7623153-0 (Version None)
Quarter: 2011Q3

REPORT INFORMATION
  Report Type: 
  Country: None (occurrence: None)
  Receive Date: 20110720
  Receipt Date: 20110711
  Transmission Date: 20111222
  Serious: Yes (Other)
  Sender: FDA-Public Use
  Company Number: PHHY2011DE50581

PATIENT
  Sex: Female
  Weight: 62 kg

DRUGS (5)
  1. PREDNISOLONE [Concomitant]
     Dosage: UNK UKN, UNK
  2. THALIDOMIDE [Concomitant]
     Dosage: UNK UKN, UNK
  3. ZOMETA [Suspect]
     Indication: PLASMACYTOMA
     Dosage: 4 MG/5 ML, EVERY 4 WEEKS
     Route: 042
     Dates: start: 20100211, end: 20101007
  4. ZOMETA [Suspect]
     Dosage: 03 MG EVERY 4 WEEKS
     Route: 042
     Dates: start: 20101104, end: 20101202
  5. MELPHALAN HYDROCHLORIDE [Concomitant]
     Dosage: UNK UKN, UNK

REACTIONS (5)
  - GINGIVAL ERYTHEMA [None]
  - OSTEITIS [None]
  - OSTEONECROSIS OF JAW [None]
  - PAIN [None]
  - GINGIVAL INFECTION [None]
